FAERS Safety Report 8443944-6 (Version None)
Quarter: 2012Q2

REPORT INFORMATION
  Report Type: 
  Country: None (occurrence: None)
  Receive Date: 20120618
  Receipt Date: 20120605
  Transmission Date: 20120825
  Serious: Yes (Other)
  Sender: FDA-Public Use
  Company Number: PHHY2012AU051153

PATIENT
  Age: 37 Year
  Sex: Female

DRUGS (2)
  1. CLOFAZIMINE [Suspect]
     Indication: NODULAR VASCULITIS
     Dosage: 300 MG, UNK
     Route: 048
  2. PREDNISOLONE [Concomitant]

REACTIONS (5)
  - GASTROINTESTINAL DISORDER [None]
  - ABDOMINAL PAIN [None]
  - POST INFLAMMATORY PIGMENTATION CHANGE [None]
  - SKIN DISCOLOURATION [None]
  - XEROSIS [None]
